FAERS Safety Report 24438347 (Version 1)
Quarter: 2024Q4

REPORT INFORMATION
  Report Type: Other
  Country: CN (occurrence: CN)
  Receive Date: 20241015
  Receipt Date: 20241015
  Transmission Date: 20250114
  Serious: Yes (Life-Threatening)
  Sender: B BRAUN
  Company Number: CN-B.Braun Medical Inc.-2163079

PATIENT
  Age: 70 Year
  Sex: Female

DRUGS (5)
  1. DEXTROSE\LIDOCAINE HYDROCHLORIDE [Suspect]
     Active Substance: DEXTROSE\LIDOCAINE HYDROCHLORIDE
     Indication: Torsade de pointes
  2. MAGNESIUM [Suspect]
     Active Substance: MAGNESIUM
  3. UNSPECIFIED INGREDIENT [Concomitant]
     Active Substance: UNSPECIFIED INGREDIENT
  4. OSIMERTINIB [Concomitant]
     Active Substance: OSIMERTINIB
  5. POTASSIUM [Suspect]
     Active Substance: POTASSIUM

REACTIONS (1)
  - Drug ineffective [Unknown]
